FAERS Safety Report 7076420-6 (Version None)
Quarter: 2010Q4

REPORT INFORMATION
  Report Type: 
  Country: None (occurrence: None)
  Receive Date: 20101022
  Receipt Date: 20101013
  Transmission Date: 20110411
  Serious: Yes (Hospitalization)
  Sender: FDA-Public Use
  Company Number: 2010AC000447

PATIENT
  Age: 61 Year
  Sex: Female

DRUGS (14)
  1. DIGOXIN [Suspect]
     Indication: ATRIAL FIBRILLATION
     Dosage: .25 MG; QD; PO
     Route: 048
     Dates: start: 20060801, end: 20080301
  2. DIGOXIN [Suspect]
     Dosage: 0.125 MG; QD; PO
     Route: 048
     Dates: start: 20061201, end: 20080301
  3. HEPARIN [Concomitant]
  4. COUMADIN [Concomitant]
  5. METOPROLOL [Concomitant]
  6. METOFORMIN [Concomitant]
  7. LASIX [Concomitant]
  8. RYTHMOL [Concomitant]
  9. BETAPACE [Concomitant]
  10. VERAPAMIL [Concomitant]
  11. TRICOR [Concomitant]
  12. SOTALOL [Concomitant]
  13. ASPIRIN [Concomitant]
  14. SIMVASTATIN [Concomitant]

REACTIONS (36)
  - ACTIVITIES OF DAILY LIVING IMPAIRED [None]
  - ALANINE AMINOTRANSFERASE INCREASED [None]
  - ANXIETY [None]
  - AORTIC VALVE INCOMPETENCE [None]
  - ASPARTATE AMINOTRANSFERASE INCREASED [None]
  - ATRIAL FIBRILLATION [None]
  - ATRIAL FLUTTER [None]
  - BLOOD ALKALINE PHOSPHATASE INCREASED [None]
  - BLOOD GLUCOSE INCREASED [None]
  - BLOOD MAGNESIUM INCREASED [None]
  - BLOOD POTASSIUM INCREASED [None]
  - BLOOD SODIUM DECREASED [None]
  - BLOOD UREA INCREASED [None]
  - BRADYCARDIA [None]
  - BUNDLE BRANCH BLOCK RIGHT [None]
  - CARDIAC FAILURE CONGESTIVE [None]
  - CARDIOGENIC SHOCK [None]
  - CEREBRAL ISCHAEMIA [None]
  - ECONOMIC PROBLEM [None]
  - FACIAL PARESIS [None]
  - HYPOTENSION [None]
  - INJURY [None]
  - LETHARGY [None]
  - LOSS OF EMPLOYMENT [None]
  - METABOLIC ACIDOSIS [None]
  - MUSCLE TWITCHING [None]
  - MYOCARDIAL ISCHAEMIA [None]
  - NODAL ARRHYTHMIA [None]
  - PAIN [None]
  - PULMONARY VALVE INCOMPETENCE [None]
  - RENAL FAILURE [None]
  - RESPIRATORY FAILURE [None]
  - SINUS BRADYCARDIA [None]
  - SOCIAL AVOIDANT BEHAVIOUR [None]
  - THERAPEUTIC AGENT TOXICITY [None]
  - TRICUSPID VALVE INCOMPETENCE [None]
